FAERS Safety Report 7753720-5 (Version None)
Quarter: 2011Q3

REPORT INFORMATION
  Report Type: 
  Country: None (occurrence: None)
  Receive Date: 20110915
  Receipt Date: 20110915
  Transmission Date: 20111222
  Serious: Yes (Hospitalization)
  Sender: FDA-Public Use
  Company Number: None

PATIENT

DRUGS (1)
  1. LACOSAMIDE [Suspect]
     Indication: CONVULSION
     Dosage: 150 MG
     Route: 042
     Dates: start: 20110808, end: 20110810

REACTIONS (3)
  - UNRESPONSIVE TO STIMULI [None]
  - STATUS EPILEPTICUS [None]
  - CONVULSION [None]
